FAERS Safety Report 4533260-7 (Version None)
Quarter: 2004Q4

REPORT INFORMATION
  Report Type: 
  Country: None (occurrence: None)
  Receive Date: 20041210
  Receipt Date: 20041108
  Transmission Date: 20050328
  Serious: Yes (Hospitalization)
  Sender: FDA-Public Use
  Company Number: A03200402695

PATIENT
  Age: 78 Year
  Sex: Female
  Weight: 68.4932 kg

DRUGS (3)
  1. ELOXATIN [Suspect]
     Indication: COLON CANCER
     Dosage: 140 MG Q2W - INTRAVENOUS NOS
     Route: 042
     Dates: start: 20040726, end: 20040726
  2. ELOXATIN [Suspect]
     Indication: METASTASES TO LIVER
     Dosage: 140 MG Q2W - INTRAVENOUS NOS
     Route: 042
     Dates: start: 20040726, end: 20040726
  3. ELOXATIN [Suspect]
     Dosage: 140 MG Q2W INTRAVENOUS NOS
     Route: 042

REACTIONS (6)
  - EYE REDNESS [None]
  - EYE SWELLING [None]
  - LACRIMATION INCREASED [None]
  - PRURITUS [None]
  - SWELLING FACE [None]
  - THROAT IRRITATION [None]
